FAERS Safety Report 18933463 (Version 1)
Quarter: 2021Q1

REPORT INFORMATION
  Report Type: Spontaneous
  Country: PL (occurrence: PL)
  Receive Date: 20210224
  Receipt Date: 20210224
  Transmission Date: 20210420
  Serious: Yes (Other)
  Sender: FDA-Public Use
  Company Number: PL-TAKEDA-2021TUS011353

PATIENT
  Age: 70 Year
  Sex: Female

DRUGS (4)
  1. LORAFEN [Concomitant]
     Active Substance: LORAZEPAM
     Indication: PRODUCT USED FOR UNKNOWN INDICATION
     Dosage: UNK
     Route: 065
  2. IMOVANE [Concomitant]
     Active Substance: ZOPICLONE
     Indication: PRODUCT USED FOR UNKNOWN INDICATION
     Dosage: UNK
     Route: 065
  3. BRINTELLIX [Suspect]
     Active Substance: VORTIOXETINE HYDROBROMIDE
     Indication: DEPRESSION
     Dosage: 5 MILLIGRAM, QD
     Route: 048
  4. BRINTELLIX [Suspect]
     Active Substance: VORTIOXETINE HYDROBROMIDE
     Dosage: 10 MILLIGRAM, QD
     Route: 048

REACTIONS (13)
  - Depressed level of consciousness [Unknown]
  - Depressed mood [Unknown]
  - Drug intolerance [Unknown]
  - Headache [Unknown]
  - Psychomotor hyperactivity [Unknown]
  - Gait inability [Unknown]
  - Crying [Unknown]
  - Head discomfort [Unknown]
  - Panic reaction [Unknown]
  - Feeling abnormal [Unknown]
  - Hysterical psychosis [Unknown]
  - Therapy cessation [Unknown]
  - Feeling of despair [Unknown]
